FAERS Safety Report 18316931 (Version 1)
Quarter: 2020Q3

REPORT INFORMATION
  Report Type: Spontaneous
  Country: DE (occurrence: DE)
  Receive Date: 20200928
  Receipt Date: 20200928
  Transmission Date: 20201103
  Serious: Yes (Hospitalization)
  Sender: FDA-Public Use
  Company Number: DE-AUROBINDO-AUR-APL-2020-048453

PATIENT
  Age: 64 Year
  Sex: Male
  Weight: 93 kg

DRUGS (2)
  1. LEVOFLOXACIN AUROBINDO FILM?COATED TABLETS 500MG [Suspect]
     Active Substance: LEVOFLOXACIN
     Indication: CYSTITIS
     Dosage: 500 MILLIGRAM, ONCE A DAY (1X500MG PRO TAG / 7 TAGE)
     Route: 048
     Dates: start: 20200804, end: 20200810
  2. OFLOXACIN. [Concomitant]
     Active Substance: OFLOXACIN
     Indication: HORDEOLUM
     Dosage: A SHORT STRAND OF OINTMENT IN THE EYE FOR SEVERAL DAYS
     Route: 047
     Dates: start: 20200810, end: 20200819

REACTIONS (5)
  - Tendon pain [Not Recovered/Not Resolved]
  - Tendon rupture [Not Recovered/Not Resolved]
  - Pain [Not Recovered/Not Resolved]
  - Adverse reaction [Unknown]
  - Mental disorder [Not Recovered/Not Resolved]

NARRATIVE: CASE EVENT DATE: 202008
